FAERS Safety Report 5731521-7 (Version None)
Quarter: 2008Q2

REPORT INFORMATION
  Report Type: 
  Country: None (occurrence: None)
  Receive Date: 20080506
  Receipt Date: 20080506
  Transmission Date: 20081010
  Serious: Yes (Disabling)
  Sender: FDA-Public Use
  Company Number: None

PATIENT
  Age: 59 Year
  Sex: Male
  Weight: 72.5755 kg

DRUGS (1)
  1. VYTORIN [Suspect]
     Indication: BLOOD CHOLESTEROL INCREASED
     Dosage: ONE PILL ONCE PER DAY
     Dates: start: 20071107, end: 20071211

REACTIONS (3)
  - GAIT DISTURBANCE [None]
  - INSOMNIA [None]
  - PAIN IN EXTREMITY [None]
